FAERS Safety Report 5130980-0 (Version None)
Quarter: 2006Q4

REPORT INFORMATION
  Report Type: 
  Country: None (occurrence: None)
  Receive Date: 20061019
  Receipt Date: 20061013
  Transmission Date: 20070319
  Serious: Yes (Hospitalization)
  Sender: FDA-Public Use
  Company Number: US-ALLERGAN-0606316US

PATIENT
  Sex: Male
  Weight: 22 kg

DRUGS (1)
  1. BOTOX [Suspect]
     Indication: MUSCLE SPASTICITY
     Dosage: 700 UNITS, SINGLE
     Route: 030
     Dates: start: 20060920, end: 20060920

REACTIONS (5)
  - ASTHENIA [None]
  - BOTULISM [None]
  - DYSPHAGIA [None]
  - EYELID PTOSIS [None]
  - VIRAL INFECTION [None]
